FAERS Safety Report 8971595 (Version 1)
Quarter: 2012Q4

REPORT INFORMATION
  Report Type: 
  Country: US (occurrence: US)
  Receive Date: 20121217
  Receipt Date: 20121217
  Transmission Date: 20130627
  Serious: No
  Sender: FDA-Public Use
  Company Number: US-TEVA-372828USA

PATIENT
  Age: 35 Year
  Sex: Male
  Weight: 88.53 kg

DRUGS (4)
  1. COPAXONE [Suspect]
     Indication: MULTIPLE SCLEROSIS
     Dates: start: 201205
  2. SERTRALINE [Concomitant]
     Indication: DEPRESSION
  3. VITAMIN D NOS [Concomitant]
  4. CHANTIX [Concomitant]
     Indication: SMOKING CESSATION THERAPY

REACTIONS (1)
  - Immediate post-injection reaction [Recovered/Resolved]
